FAERS Safety Report 7078515-X (Version None)
Quarter: 2010Q4

REPORT INFORMATION
  Report Type: 
  Country: None (occurrence: None)
  Receive Date: 20101101
  Receipt Date: 20101101
  Transmission Date: 20110411
  Serious: Yes (Other)
  Sender: FDA-Public Use
  Company Number: None

PATIENT
  Age: 2 Year
  Sex: Female
  Weight: 10.4327 kg

DRUGS (1)
  1. HYLAND'S TEETHING TABLETS 125 TABLETS HYLAND'S INC. LOS ANGELES, CA [Suspect]
     Indication: TEETHING
     Dosage: 3 TABLETS 2 TIMES A DAY
     Dates: start: 20090101, end: 20101017

REACTIONS (2)
  - CONVULSION [None]
  - PRODUCT QUALITY ISSUE [None]
